FAERS Safety Report 4906902-1 (Version None)
Quarter: 2006Q1

REPORT INFORMATION
  Report Type: 
  Country: None (occurrence: None)
  Receive Date: 20060207
  Receipt Date: 20060119
  Transmission Date: 20060701
  Serious: Yes (Hospitalization)
  Sender: FDA-Public Use
  Company Number: UY200601003594

PATIENT
  Sex: Female

DRUGS (1)
  1. LISPRO (LISPRO LISPRO) CARTRIDGE [Suspect]
     Dosage: SUB. PUMP
     Dates: start: 20050201

REACTIONS (6)
  - ACETONAEMIA [None]
  - CAESAREAN SECTION [None]
  - DEHYDRATION [None]
  - DRUG EXPOSURE DURING PREGNANCY [None]
  - HYPERGLYCAEMIA [None]
  - VOMITING [None]
